FAERS Safety Report 7701678-7 (Version None)
Quarter: 2011Q3

REPORT INFORMATION
  Report Type: 
  Country: None (occurrence: None)
  Receive Date: 20110822
  Receipt Date: 20110812
  Transmission Date: 20111222
  Serious: Yes (Disabling)
  Sender: FDA-Public Use
  Company Number: GB-ASTRAZENECA-2011SE42939

PATIENT
  Age: 52 Year
  Sex: Female

DRUGS (1)
  1. ZOLADEX [Suspect]
     Indication: UTERINE LEIOMYOMA
     Route: 058

REACTIONS (3)
  - MOBILITY DECREASED [None]
  - MUSCLE SPASMS [None]
  - MULTIPLE SCLEROSIS [None]
